FAERS Safety Report 10266809 (Version 1)
Quarter: 2014Q2

REPORT INFORMATION
  Report Type: Spontaneous
  Country: US (occurrence: None)
  Receive Date: 20140626
  Receipt Date: 20140626
  Transmission Date: 20141212
  Serious: Yes (Other)
  Sender: FDA-Public Use
  Company Number: None

PATIENT
  Age: 37 Year
  Sex: Male

DRUGS (2)
  1. SEROQUEL [Suspect]
     Indication: PSYCHOTIC DISORDER
     Dosage: 1PILL, AT 6PM, TAKEN BY MOUTH
     Route: 048
     Dates: start: 2008
  2. SEROQUEL [Suspect]
     Indication: DEPRESSION
     Dosage: 1PILL, AT 6PM, TAKEN BY MOUTH
     Route: 048
     Dates: start: 2008

REACTIONS (9)
  - Increased appetite [None]
  - Weight increased [None]
  - Sleep-related eating disorder [None]
  - Somnambulism [None]
  - Choking [None]
  - Cough [None]
  - Gait disturbance [None]
  - Limb discomfort [None]
  - Food craving [None]
